FAERS Safety Report 10215566 (Version 1)
Quarter: 2014Q2

REPORT INFORMATION
  Report Type: Spontaneous
  Country: FR (occurrence: FR)
  Receive Date: 20140604
  Receipt Date: 20140604
  Transmission Date: 20141212
  Serious: Yes (Other)
  Sender: FDA-Public Use
  Company Number: FR-AMGEN INC.-FRASP2014040011

PATIENT
  Age: 60 Year
  Sex: Male

DRUGS (6)
  1. XGEVA [Suspect]
     Indication: METASTASES TO BONE
     Dosage: 120 MG, QMO
     Route: 058
     Dates: start: 20130618, end: 20140215
  2. CACIT VITAMINE D3 [Concomitant]
     Route: 065
  3. ENANTONE                           /00726901/ [Concomitant]
     Route: 065
  4. CASODEX [Concomitant]
     Route: 065
  5. DUROGESIC [Concomitant]
     Route: 065
  6. LYRICA [Concomitant]
     Route: 065

REACTIONS (1)
  - Osteonecrosis [Not Recovered/Not Resolved]
